FAERS Safety Report 22197104 (Version 1)
Quarter: 2023Q2

REPORT INFORMATION
  Report Type: Spontaneous
  Country: GB (occurrence: GB)
  Receive Date: 20230411
  Receipt Date: 20230411
  Transmission Date: 20230721
  Serious: Yes (Other)
  Sender: FDA-Public Use
  Company Number: GB-MHRA-MED-202303290835208880-NBLCR

PATIENT
  Age: 41 Year
  Sex: Female

DRUGS (1)
  1. CIPROFLOXACIN [Suspect]
     Active Substance: CIPROFLOXACIN
     Indication: Bronchiectasis
     Dates: start: 20230309, end: 20230323

REACTIONS (4)
  - Arthralgia [Not Recovered/Not Resolved]
  - Swelling [Not Recovered/Not Resolved]
  - Myalgia [Not Recovered/Not Resolved]
  - Night sweats [Not Recovered/Not Resolved]

NARRATIVE: CASE EVENT DATE: 20230316
